FAERS Safety Report 8641798 (Version 2)
Quarter: 2012Q4

REPORT INFORMATION
  Report Type: Report from Study
  Country: ES (occurrence: ES)
  Receive Date: 20120628
  Receipt Date: 20121126
  Transmission Date: 20130627
  Serious: Yes (Death, Hospitalization)
  Sender: FDA-Public Use
  Company Number: ES-CELGENEUS-144-21880-12062451

PATIENT
  Age: 58 Year
  Sex: Male

DRUGS (17)
  1. REVLIMID [Suspect]
     Indication: MULTIPLE MYELOMA
     Dosage: 25 Milligram
     Route: 048
     Dates: start: 20120309
  2. REVLIMID [Suspect]
     Dosage: 25 Milligram
     Route: 048
     Dates: start: 20120602, end: 20120613
  3. DEXAMETHASONE [Suspect]
     Indication: MULTIPLE MYELOMA
     Dosage: 20 Milligram
     Route: 048
     Dates: start: 20120309
  4. DEXAMETHASONE [Suspect]
     Dosage: 20 Milligram
     Route: 048
     Dates: start: 20120602, end: 20120613
  5. TERBASMIN [Concomitant]
     Indication: CHRONIC OBSTRUCTIVE PULMONARY DISEASE
     Route: 055
     Dates: end: 20120614
  6. OMEPRAZOLE [Concomitant]
     Indication: PROPHYLAXIS
     Dosage: 20 Milligram
     Route: 048
     Dates: end: 20120614
  7. ALLOPURINOL [Concomitant]
     Indication: HYPERURICAEMIA
     Dosage: 40 Milligram
     Route: 048
     Dates: end: 20120614
  8. ALLOPURINOL [Concomitant]
     Dosage: 300 Unknown
     Route: 048
     Dates: end: 20120614
  9. SIMVASTATIN [Concomitant]
     Indication: HYPOLIPIDAEMIA
     Dosage: 20 Milligram
     Route: 048
     Dates: end: 20120614
  10. SIMVASTATIN [Concomitant]
     Dosage: 300 Unknown
     Route: 048
     Dates: end: 20120614
  11. FUROSEMIDE [Concomitant]
     Indication: DIURESIS
     Dosage: 80 Milligram
     Route: 048
     Dates: end: 20120614
  12. LYRICA [Concomitant]
     Indication: NEUROPATHY
     Dosage: 450 Milligram
     Route: 048
     Dates: end: 20120614
  13. METFORMIN [Concomitant]
     Indication: DIABETES MELLITUS
     Dosage: 850 Milligram
     Route: 048
     Dates: end: 20120614
  14. CALCIUM SANDOZ [Concomitant]
     Indication: CHRONIC OBSTRUCTIVE PULMONARY DISEASE
     Route: 048
     Dates: end: 20120614
  15. RILAST [Concomitant]
     Indication: CHRONIC OBSTRUCTIVE PULMONARY DISEASE
     Route: 055
     Dates: end: 20120614
  16. SPIRIVA [Concomitant]
     Indication: CHRONIC OBSTRUCTIVE PULMONARY DISEASE
     Route: 055
     Dates: end: 20120614
  17. EPO [Concomitant]
     Indication: DRUG USE FOR UNKNOWN INDICATION
     Route: 065

REACTIONS (3)
  - Septic shock [Fatal]
  - Pneumonia [Fatal]
  - Neutropenia [Fatal]
